FAERS Safety Report 5797480-6 (Version None)
Quarter: 2008Q2

REPORT INFORMATION
  Report Type: 
  Country: None (occurrence: None)
  Receive Date: 20080630
  Receipt Date: 20080613
  Transmission Date: 20081010
  Serious: Yes (Hospitalization)
  Sender: FDA-Public Use
  Company Number: 2008AL006882

PATIENT
  Age: 63 Year
  Sex: Male
  Weight: 87.5442 kg

DRUGS (9)
  1. DIGOXIN [Suspect]
     Indication: ARRHYTHMIA
     Dosage: 0.125MG, QD, PO
     Route: 048
     Dates: start: 20030101, end: 20080617
  2. COUMADIN [Concomitant]
  3. ACTOS [Concomitant]
  4. LIPITOR [Concomitant]
  5. GLIPIZIDE [Concomitant]
  6. METFORMIN HCL [Concomitant]
  7. TOPROL-XL [Concomitant]
  8. LIZINOPRIL [Concomitant]
  9. HYDRALAZINE/HYDROCHLOROTHIAZIDE [Concomitant]

REACTIONS (4)
  - DIALYSIS [None]
  - DIARRHOEA [None]
  - RENAL FAILURE [None]
  - VOMITING [None]
